FAERS Safety Report 9275814 (Version 1)
Quarter: 2013Q2

REPORT INFORMATION
  Report Type: Spontaneous
  Country: NZ (occurrence: NZ)
  Receive Date: 20130507
  Receipt Date: 20130507
  Transmission Date: 20140414
  Serious: Yes (Disabling)
  Sender: FDA-Public Use
  Company Number: NZ-ABBOTT-13P-008-1051213-00

PATIENT
  Sex: Female

DRUGS (2)
  1. HUMIRA [Suspect]
     Indication: PRODUCT USED FOR UNKNOWN INDICATION
     Dates: start: 201003, end: 201008
  2. ETANERCEPT [Suspect]
     Indication: PSORIASIS
     Route: 058
     Dates: start: 201102

REACTIONS (11)
  - Nodule [Unknown]
  - Pruritus [Unknown]
  - Anosmia [Unknown]
  - Ageusia [Unknown]
  - Poor quality sleep [Unknown]
  - Mood altered [Unknown]
  - Agitation [Unknown]
  - Depression [Unknown]
  - Abdominal discomfort [Unknown]
  - Lower respiratory tract infection [Unknown]
  - Drug effect decreased [Unknown]
